FAERS Safety Report 7348816-6 (Version None)
Quarter: 2011Q1

REPORT INFORMATION
  Report Type: 
  Country: None (occurrence: None)
  Receive Date: 20110314
  Receipt Date: 20100927
  Transmission Date: 20110831
  Serious: Yes (Hospitalization, Other)
  Sender: FDA-Public Use
  Company Number: US-BAYER-201033560NA

PATIENT
  Sex: Female
  Weight: 98.413 kg

DRUGS (4)
  1. OCELLA [Suspect]
     Indication: ACNE
  2. SEPTRA [Concomitant]
     Indication: URINARY TRACT INFECTION
  3. YAZ [Suspect]
     Indication: ACNE
  4. YASMIN [Suspect]
     Indication: ACNE

REACTIONS (10)
  - PAIN [None]
  - BLOOD URINE PRESENT [None]
  - ANAEMIA [None]
  - VOMITING [None]
  - NAUSEA [None]
  - RENAL EMBOLISM [None]
  - MESENTERIC VEIN THROMBOSIS [None]
  - INJURY [None]
  - INTESTINAL ISCHAEMIA [None]
  - THROMBOSIS [None]
